FAERS Safety Report 14742116 (Version 2)
Quarter: 2018Q2

REPORT INFORMATION
  Report Type: Spontaneous
  Country: AU (occurrence: AU)
  Receive Date: 20180410
  Receipt Date: 20180418
  Transmission Date: 20180711
  Serious: Yes (Other)
  Sender: FDA-Public Use
  Company Number: AU-PFIZER INC-2018080826

PATIENT
  Age: 60 Year
  Sex: Female

DRUGS (3)
  1. APOMINE [Suspect]
     Active Substance: APOMORPHINE HYDROCHLORIDE
     Indication: PARKINSON^S DISEASE
     Dosage: 7MLX5MG INFUSION DAILY (AT 1.5 MG PER HOUR)
     Dates: start: 20180112
  2. LIPITOR [Suspect]
     Active Substance: ATORVASTATIN CALCIUM
     Dosage: UNK
     Dates: start: 200306, end: 20180220
  3. ARAVA [Suspect]
     Active Substance: LEFLUNOMIDE
     Dosage: UNK
     Dates: start: 200906, end: 20180212

REACTIONS (3)
  - Hepatic failure [Recovering/Resolving]
  - Hepatic enzyme increased [Recovering/Resolving]
  - Injection site bruising [Not Recovered/Not Resolved]

NARRATIVE: CASE EVENT DATE: 20180115
